FAERS Safety Report 9913939 (Version 4)
Quarter: 2016Q3

REPORT INFORMATION
  Report Type: Spontaneous
  Country: US (occurrence: US)
  Receive Date: 20140220
  Receipt Date: 20160829
  Transmission Date: 20161109
  Serious: Yes (Other)
  Sender: FDA-Public Use
  Company Number: US-PFIZER INC-2014036140

PATIENT
  Age: 57 Year
  Sex: Male

DRUGS (2)
  1. LYRICA [Suspect]
     Active Substance: PREGABALIN
     Dosage: 75 MG, 3X/DAY
     Route: 048
     Dates: start: 20160824
  2. LYRICA [Suspect]
     Active Substance: PREGABALIN
     Indication: DIABETIC NEUROPATHY
     Dosage: UNK
     Dates: end: 20140211

REACTIONS (6)
  - Cold sweat [Unknown]
  - Abnormal dreams [Unknown]
  - Nausea [Unknown]
  - Insomnia [Unknown]
  - Coronary artery disease [Unknown]
  - Decreased appetite [Unknown]
